FAERS Safety Report 8170884-2 (Version None)
Quarter: 2012Q1

REPORT INFORMATION
  Report Type: 
  Country: None (occurrence: None)
  Receive Date: 20120228
  Receipt Date: 20120227
  Transmission Date: 20120608
  Serious: Yes (Other)
  Sender: FDA-Public Use
  Company Number: US-TEVA-324758USA

PATIENT
  Sex: Female
  Weight: 55.842 kg

DRUGS (4)
  1. CLONAZEPAM [Concomitant]
     Indication: AUTONOMIC NERVOUS SYSTEM IMBALANCE
     Dosage: QHS
     Route: 048
     Dates: start: 20111001
  2. FLUOXETINE HYDROCHLORIDE [Concomitant]
     Indication: AUTONOMIC NERVOUS SYSTEM IMBALANCE
     Dosage: QD
     Route: 048
     Dates: start: 20111001
  3. NUVIGIL [Suspect]
     Indication: NARCOLEPSY
     Dosage: QAM
     Route: 048
     Dates: start: 20120218, end: 20120225
  4. ATENOLOL [Concomitant]
     Indication: AUTONOMIC NERVOUS SYSTEM IMBALANCE
     Dosage: QD
     Route: 048
     Dates: start: 20111001

REACTIONS (4)
  - DYSPNOEA [None]
  - PARAESTHESIA [None]
  - THROAT TIGHTNESS [None]
  - BODY TEMPERATURE DECREASED [None]
